FAERS Safety Report 9367498 (Version 1)
Quarter: 2013Q2

REPORT INFORMATION
  Report Type: Spontaneous
  Country: US (occurrence: US)
  Receive Date: 20130625
  Receipt Date: 20130625
  Transmission Date: 20140414
  Serious: No
  Sender: FDA-Public Use
  Company Number: US-ASTELLAS-2012US006309

PATIENT
  Sex: Female

DRUGS (3)
  1. VESICARE [Suspect]
     Indication: HYPERTONIC BLADDER
     Dosage: 5 MG, UID/QD
     Route: 048
     Dates: start: 2012
  2. NOVOLOG [Concomitant]
     Indication: DIABETES MELLITUS
     Dosage: 25 UNITS IN TH EMORNING, 10 UNITS AT LUNCH, 18 UNITS IN THE EVENINGS.
     Route: 058
  3. LEVEMIR [Concomitant]
     Indication: DIABETES MELLITUS
     Dosage: 38 UNITS IN THE MORNING, 22 UNITS IN THE EVENING
     Route: 058

REACTIONS (1)
  - Wrong technique in drug usage process [Unknown]
